FAERS Safety Report 4718049-8 (Version None)
Quarter: 2005Q3

REPORT INFORMATION
  Report Type: 
  Country: None (occurrence: None)
  Receive Date: 20050718
  Receipt Date: 20050407
  Transmission Date: 20060218
  Serious: No
  Sender: FDA-Public Use
  Company Number: 2005000685

PATIENT
  Age: 67 Year
  Sex: Female
  Weight: 50.3493 kg

DRUGS (1)
  1. TARCEVA [Suspect]
     Indication: NON-SMALL CELL LUNG CANCER
     Dosage: (QD)
     Dates: start: 20050101

REACTIONS (5)
  - BLOOD POTASSIUM INCREASED [None]
  - BRONCHITIS [None]
  - FATIGUE [None]
  - HEPATIC PAIN [None]
  - WEIGHT DECREASED [None]
